FAERS Safety Report 8023723-4 (Version None)
Quarter: 2012Q1

REPORT INFORMATION
  Report Type: 
  Country: None (occurrence: None)
  Receive Date: 20120105
  Receipt Date: 20111228
  Transmission Date: 20120608
  Serious: Yes (Hospitalization, Other)
  Sender: FDA-Public Use
  Company Number: US-BAYER-2011-075010

PATIENT
  Age: 18 Year
  Sex: Female

DRUGS (4)
  1. YASMIN [Suspect]
     Indication: MENSTRUAL CYCLE MANAGEMENT
  2. WELLBUTRIN [Concomitant]
     Indication: DEPRESSION
  3. YASMIN [Suspect]
     Indication: CONTRACEPTION
     Dosage: UNK
     Dates: start: 20020101, end: 20040101
  4. METFORMIN HCL [Concomitant]
     Indication: INSULIN RESISTANCE

REACTIONS (4)
  - CHOLELITHIASIS [None]
  - GALLBLADDER INJURY [None]
  - INJURY [None]
  - PAIN [None]
